FAERS Safety Report 7044849-8 (Version None)
Quarter: 2010Q4

REPORT INFORMATION
  Report Type: 
  Country: None (occurrence: None)
  Receive Date: 20101014
  Receipt Date: 20101001
  Transmission Date: 20110411
  Serious: Yes (Hospitalization)
  Sender: FDA-Public Use
  Company Number: PHEH2010US02534

PATIENT
  Sex: Female

DRUGS (3)
  1. EXJADE [Suspect]
     Indication: LYMPHATIC DISORDER
     Dosage: 1000 MG, QD
     Route: 048
  2. EXJADE [Suspect]
     Dosage: 1500 MG, QD
     Route: 048
  3. IMODIUM [Concomitant]
     Dosage: PRN

REACTIONS (4)
  - CHOLECYSTECTOMY [None]
  - DIARRHOEA [None]
  - DRUG INEFFECTIVE [None]
  - GALLBLADDER DISORDER [None]
